FAERS Safety Report 7594252-7 (Version None)
Quarter: 2011Q3

REPORT INFORMATION
  Report Type: 
  Country: None (occurrence: None)
  Receive Date: 20110706
  Receipt Date: 20110706
  Transmission Date: 20111222
  Serious: Yes (Life-Threatening, Hospitalization)
  Sender: FDA-Public Use
  Company Number: None

PATIENT
  Age: 76 Year
  Sex: Female
  Weight: 71 kg

DRUGS (1)
  1. DABIGATRAN [Suspect]
     Indication: AORTIC VALVE REPLACEMENT
     Dosage: 75MG
     Route: 048
     Dates: start: 20110601, end: 20110629

REACTIONS (4)
  - EROSIVE DUODENITIS [None]
  - GASTRITIS EROSIVE [None]
  - MALLORY-WEISS SYNDROME [None]
  - UPPER GASTROINTESTINAL HAEMORRHAGE [None]
